FAERS Safety Report 25159841 (Version 1)
Quarter: 2025Q2

REPORT INFORMATION
  Report Type: Report from Study
  Country: CN (occurrence: CN)
  Receive Date: 20250404
  Receipt Date: 20250404
  Transmission Date: 20250716
  Serious: Yes (Death, Other)
  Sender: ROCHE
  Company Number: CN-ROCHE-10000246801

PATIENT

DRUGS (2)
  1. RITUXIMAB [Suspect]
     Active Substance: RITUXIMAB
     Indication: Antisynthetase syndrome
     Route: 065
  2. OBINUTUZUMAB [Suspect]
     Active Substance: OBINUTUZUMAB
     Indication: Antisynthetase syndrome
     Route: 065

REACTIONS (10)
  - COVID-19 [Fatal]
  - Respiratory tract infection [Unknown]
  - Bacterial infection [Unknown]
  - Pneumocystis jirovecii pneumonia [Unknown]
  - Fungal infection [Unknown]
  - Haematological infection [Unknown]
  - Urinary tract infection [Unknown]
  - Hepatitis B reactivation [Unknown]
  - Papillary thyroid cancer [Unknown]
  - Off label use [Unknown]
